FAERS Safety Report 5096576-4 (Version None)
Quarter: 2006Q3

REPORT INFORMATION
  Report Type: 
  Country: None (occurrence: None)
  Receive Date: 20060830
  Receipt Date: 20060817
  Transmission Date: 20061208
  Serious: Yes (Hospitalization, Other)
  Sender: FDA-Public Use
  Company Number: 2006101771

PATIENT
  Sex: Female

DRUGS (1)
  1. EPIRUBICIN [Suspect]
     Indication: DRUG USE FOR UNKNOWN INDICATION
     Dosage: INTRAVENOUS

REACTIONS (5)
  - DRUG INTOLERANCE [None]
  - DRUG TOXICITY [None]
  - UNEVALUABLE EVENT [None]
  - WOUND INFECTION [None]
  - WOUND NECROSIS [None]
